FAERS Safety Report 5797041-9 (Version None)
Quarter: 2008Q3

REPORT INFORMATION
  Report Type: 
  Country: None (occurrence: None)
  Receive Date: 20080701
  Receipt Date: 20080624
  Transmission Date: 20090109
  Serious: Yes (Life-Threatening, Other)
  Sender: FDA-Public Use
  Company Number: US-ELI_LILLY_AND_COMPANY-US200804000560

PATIENT
  Sex: Female
  Weight: 92.971 kg

DRUGS (14)
  1. BYETTA [Suspect]
     Indication: TYPE 2 DIABETES MELLITUS
     Dosage: 5 UG, 2/D
     Route: 058
     Dates: start: 20080328, end: 20080401
  2. METFORMIN HCL [Concomitant]
     Indication: DIABETES MELLITUS
     Dosage: 500 MG, 2/D
     Route: 048
  3. ANALGESICS [Concomitant]
  4. LISINOPRIL [Concomitant]
     Dosage: UNK, UNK
  5. IBUROFEN [Concomitant]
     Dosage: UNK, UNK
  6. LIPITOR [Concomitant]
     Dosage: UNK, UNK
  7. TRICOR [Concomitant]
     Dosage: UNK, UNK
  8. PROZAC [Concomitant]
     Dosage: UNK, UNK
  9. WELLBUTRIN [Concomitant]
     Dosage: UNK, UNK
  10. ASPIRIN [Concomitant]
     Dosage: UNK, UNK
  11. TEMAZEPAM [Concomitant]
     Dosage: UNK, UNK
  12. BENADRYL [Concomitant]
     Route: 048
  13. BENADRYL [Concomitant]
     Dosage: UNK, UNK
     Route: 042
     Dates: start: 20080101
  14. FLEXERIL [Concomitant]

REACTIONS (6)
  - ANAPHYLACTIC REACTION [None]
  - DEHYDRATION [None]
  - FATIGUE [None]
  - HYPOVOLAEMIC SHOCK [None]
  - LOSS OF CONSCIOUSNESS [None]
  - NEUROLOGICAL SYMPTOM [None]
